FAERS Safety Report 5468858-5 (Version None)
Quarter: 2007Q3

REPORT INFORMATION
  Report Type: 
  Country: None (occurrence: None)
  Receive Date: 20070926
  Receipt Date: 20070914
  Transmission Date: 20080115
  Serious: Yes (Other)
  Sender: FDA-Public Use
  Company Number: US-PFIZER INC-2007077962

PATIENT
  Age: 55 Year
  Sex: Female

DRUGS (1)
  1. VFEND [Suspect]

REACTIONS (2)
  - BONE PAIN [None]
  - LUNG TRANSPLANT [None]
